FAERS Safety Report 8830153 (Version 3)
Quarter: 2013Q4

REPORT INFORMATION
  Report Type: Spontaneous
  Country: JP (occurrence: JP)
  Receive Date: 20121008
  Receipt Date: 20131211
  Transmission Date: 20140711
  Serious: Yes (Other)
  Sender: FDA-Public Use
  Company Number: JP-SANOFI-AVENTIS-2012SA073546

PATIENT
  Age: 72 Year
  Sex: Male

DRUGS (14)
  1. MYSLEE [Suspect]
     Indication: INSOMNIA
     Route: 048
     Dates: start: 201010
  2. MYSLEE [Suspect]
     Indication: INSOMNIA
     Route: 048
     Dates: start: 201010
  3. MYSLEE [Suspect]
     Indication: INSOMNIA
     Route: 048
     Dates: start: 20120321
  4. MYSLEE [Suspect]
     Indication: INSOMNIA
     Route: 048
     Dates: start: 20120321
  5. MYSLEE [Suspect]
     Indication: INSOMNIA
     Route: 048
     Dates: start: 20130518, end: 20130518
  6. MYSLEE [Suspect]
     Indication: INSOMNIA
     Route: 048
     Dates: start: 20130518, end: 20130518
  7. MYSLEE [Suspect]
     Indication: INSOMNIA
     Route: 048
     Dates: start: 20130525, end: 20130531
  8. MYSLEE [Suspect]
     Indication: INSOMNIA
     Route: 048
     Dates: start: 20130525, end: 20130531
  9. OXYGEN [Concomitant]
  10. NITRODERM [Concomitant]
  11. ARTIST [Concomitant]
  12. ALDACTONE-A [Concomitant]
     Route: 048
  13. ASPARA K [Concomitant]
     Route: 048
  14. ZYLORIC [Concomitant]

REACTIONS (3)
  - Sexual abuse [Unknown]
  - Abnormal behaviour [Unknown]
  - Anterograde amnesia [Unknown]
